FAERS Safety Report 8265644-8 (Version None)
Quarter: 2012Q2

REPORT INFORMATION
  Report Type: 
  Country: None (occurrence: None)
  Receive Date: 20120404
  Receipt Date: 20120326
  Transmission Date: 20120825
  Serious: Yes (Life-Threatening, Other)
  Sender: FDA-Public Use
  Company Number: ACO_29839_2012

PATIENT
  Age: 56 Year
  Sex: Female
  Weight: 59.4 kg

DRUGS (13)
  1. MULTIVITAMIN /00831701/ (VITAMINS NOS) [Concomitant]
  2. MAGNESIUM (MAGNESIUM) [Concomitant]
  3. AMPYRA [Suspect]
     Indication: GAIT DISTURBANCE
     Dosage: 10 MG, QD, ORAL ; 10 MG, BID,ORAL ;10 MG, BID, ORAL
     Route: 048
     Dates: start: 20111101, end: 20111201
  4. AMPYRA [Suspect]
     Indication: GAIT DISTURBANCE
     Dosage: 10 MG, QD, ORAL ; 10 MG, BID,ORAL ;10 MG, BID, ORAL
     Route: 048
     Dates: start: 20111201, end: 20120301
  5. AMPYRA [Suspect]
     Indication: GAIT DISTURBANCE
     Dosage: 10 MG, QD, ORAL ; 10 MG, BID,ORAL ;10 MG, BID, ORAL
     Route: 048
     Dates: start: 20111001, end: 20111101
  6. CYMBALTA [Concomitant]
  7. CARVEDILOL [Concomitant]
  8. CALCIUM CARBONATE [Concomitant]
  9. PREVACID [Concomitant]
  10. FISH OIL (FISH OIL) [Concomitant]
  11. VALIUM [Concomitant]
  12. GABAPENTIN [Concomitant]
  13. VITAMIN D [Concomitant]

REACTIONS (8)
  - PSYCHOTIC DISORDER [None]
  - MUSCLE SPASMS [None]
  - CONDITION AGGRAVATED [None]
  - ANXIETY [None]
  - DEPRESSION [None]
  - SUICIDAL IDEATION [None]
  - INSOMNIA [None]
  - INAPPROPRIATE SCHEDULE OF DRUG ADMINISTRATION [None]
